FAERS Safety Report 23353730 (Version 1)
Quarter: 2024Q1

REPORT INFORMATION
  Report Type: Spontaneous
  Country: US (occurrence: US)
  Receive Date: 20240101
  Receipt Date: 20240101
  Transmission Date: 20240409
  Serious: No
  Sender: FDA-Public Use
  Company Number: US-PURDUE PHARMA-USA-2023-0305317

PATIENT
  Age: 68 Year
  Sex: Female
  Weight: 67.12 kg

DRUGS (1)
  1. BUPRENORPHINE [Suspect]
     Active Substance: BUPRENORPHINE
     Indication: Pain management
     Dosage: 7.5 MCG/HR, WEEKLY (EVERY SEVEN DAYS)
     Route: 062
     Dates: start: 20231011

REACTIONS (2)
  - Pruritus [Not Recovered/Not Resolved]
  - Product adhesion issue [Not Recovered/Not Resolved]

NARRATIVE: CASE EVENT DATE: 20230912
